FAERS Safety Report 8337723-8 (Version None)
Quarter: 2012Q2

REPORT INFORMATION
  Report Type: 
  Country: None (occurrence: None)
  Receive Date: 20120504
  Receipt Date: 20120423
  Transmission Date: 20120825
  Serious: Yes (Other)
  Sender: FDA-Public Use
  Company Number: IT-TEVA-335462ISR

PATIENT
  Age: 79 Year
  Sex: Male

DRUGS (1)
  1. TICLOPIDINE HCL [Suspect]
     Indication: TRANSIENT ISCHAEMIC ATTACK
     Dosage: 250 MILLIGRAM;
     Route: 048

REACTIONS (4)
  - RENAL FAILURE ACUTE [None]
  - TOXIC EPIDERMAL NECROLYSIS [None]
  - ASPERGILLOSIS [None]
  - LUNG INFECTION PSEUDOMONAL [None]
